FAERS Safety Report 9613164 (Version 1)
Quarter: 2013Q4

REPORT INFORMATION
  Report Type: Spontaneous
  Country: US (occurrence: US)
  Receive Date: 20131010
  Receipt Date: 20131010
  Transmission Date: 20140711
  Serious: Yes (Other)
  Sender: FDA-Public Use
  Company Number: US-TEVA-437240USA

PATIENT
  Age: 66 Year
  Sex: Female

DRUGS (5)
  1. CALCITRIOL [Suspect]
     Indication: HYPOCALCAEMIA
     Dosage: 0.25 MICROG/D
     Route: 048
  2. CALCIUM [Suspect]
     Indication: HYPOCALCAEMIA
     Dosage: DAILY
     Route: 065
  3. COLECALCIFEROL [Suspect]
     Indication: HYPOCALCAEMIA
     Dosage: DAILY
     Route: 065
  4. ASPIRIN\CALCIUM CARBONATE [Suspect]
     Indication: HYPOCALCAEMIA
     Dosage: DAILY
     Route: 065
  5. SODIUM THIOSULFATE [Suspect]
     Dosage: 1 ML

REACTIONS (2)
  - Calciphylaxis [Recovered/Resolved]
  - Injection site pain [Unknown]
